FAERS Safety Report 17864854 (Version 5)
Quarter: 2020Q3

REPORT INFORMATION
  Report Type: Spontaneous
  Country: PT (occurrence: PT)
  Receive Date: 20200605
  Receipt Date: 20200721
  Transmission Date: 20201103
  Serious: Yes (Hospitalization, Other)
  Sender: FDA-Public Use
  Company Number: PT-MYLANLABS-2020M1053857

PATIENT
  Age: 15 Year
  Sex: Male

DRUGS (54)
  1. DIAZEPAM. [Suspect]
     Active Substance: DIAZEPAM
     Indication: SEDATIVE THERAPY
     Dosage: 5 MILLIGRAM, BID
     Route: 065
  2. ETHYL LOFLAZEPATE [Concomitant]
     Active Substance: ETHYL LOFLAZEPATE
     Indication: ANXIETY
     Dosage: UNK
  3. OLANZAPINE. [Suspect]
     Active Substance: OLANZAPINE
     Indication: TOURETTE^S DISORDER
     Dosage: 5 MILLIGRAM, QD
  4. TIAPRIDE [Suspect]
     Active Substance: TIAPRIDE
     Indication: TOURETTE^S DISORDER
     Dosage: 150 MILLIGRAM, QD, 50 MG, TID
  5. CLONAZEPAM. [Suspect]
     Active Substance: CLONAZEPAM
     Indication: TOURETTE^S DISORDER
  6. LORAZEPAM. [Concomitant]
     Active Substance: LORAZEPAM
     Indication: PRODUCT USED FOR UNKNOWN INDICATION
     Dosage: 1 MG, BID
     Route: 065
  7. ETHYL LOFLAZEPATE [Concomitant]
     Active Substance: ETHYL LOFLAZEPATE
     Indication: TIC
     Dosage: UNK
     Route: 065
  8. KETAMINE [Concomitant]
     Active Substance: KETAMINE
     Indication: SEDATIVE THERAPY
     Dosage: UNK
     Route: 065
  9. MELATONIN [Concomitant]
     Active Substance: MELATONIN
     Indication: OBSESSIVE-COMPULSIVE DISORDER
  10. SERTRALINE [Suspect]
     Active Substance: SERTRALINE HYDROCHLORIDE
     Indication: TOURETTE^S DISORDER
     Dosage: 50 MILLIGRAM, QD (50 MG, QD)
     Route: 065
  11. TETRABENAZINE. [Suspect]
     Active Substance: TETRABENAZINE
     Dosage: UNK
     Route: 065
  12. CLONIDINE. [Suspect]
     Active Substance: CLONIDINE
     Dosage: 150 MICROGRAM, 150 MICROGRAM,4 ID
     Route: 065
  13. CLONIDINE. [Suspect]
     Active Substance: CLONIDINE
     Dosage: 112.5 MICROGRAM, TID (THREE TIMES A DAY)
     Route: 065
  14. MIDAZOLAM. [Suspect]
     Active Substance: MIDAZOLAM
     Indication: SEDATIVE THERAPY
     Dosage: UNK (BOLUSES)
     Route: 040
  15. MIDAZOLAM. [Suspect]
     Active Substance: MIDAZOLAM
     Indication: TOURETTE^S DISORDER
  16. LTG [Concomitant]
     Active Substance: LAMOTRIGINE
     Indication: TIC
     Dosage: 75 MG, QD
  17. FLUVOXAMINE [Concomitant]
     Active Substance: FLUVOXAMINE
     Indication: ANXIETY
     Dosage: UNK
  18. PROPOFOL. [Concomitant]
     Active Substance: PROPOFOL
     Indication: SEDATIVE THERAPY
     Dosage: UNK
     Route: 065
  19. LAMOTRIGINE. [Suspect]
     Active Substance: LAMOTRIGINE
     Indication: OBSESSIVE-COMPULSIVE DISORDER
  20. ARIPIPRAZOLE. [Suspect]
     Active Substance: ARIPIPRAZOLE
     Indication: TOURETTE^S DISORDER
     Dosage: 1 MILLIGRAM, QD (1 MG, QD)
  21. ARIPIPRAZOLE. [Suspect]
     Active Substance: ARIPIPRAZOLE
     Indication: OBSESSIVE-COMPULSIVE DISORDER
  22. PIMOZIDE. [Suspect]
     Active Substance: PIMOZIDE
     Indication: OBSESSIVE-COMPULSIVE DISORDER
     Dosage: UNK
     Route: 065
  23. LORAZEPAM. [Suspect]
     Active Substance: LORAZEPAM
     Indication: SEDATIVE THERAPY
     Dosage: 2 MILLIGRAM, TID (THREE TIMES A DAY)
  24. LORAZEPAM. [Suspect]
     Active Substance: LORAZEPAM
     Indication: TOURETTE^S DISORDER
  25. CLONAZEPAM. [Concomitant]
     Active Substance: CLONAZEPAM
     Indication: TIC
     Dosage: 1.5 MILLIGRAM, QD, 0.5 MG, TID
     Route: 065
  26. VALPROIC ACID. [Concomitant]
     Active Substance: VALPROIC ACID
     Indication: OBSESSIVE-COMPULSIVE DISORDER
  27. MELATONIN [Concomitant]
     Active Substance: MELATONIN
     Indication: TOURETTE^S DISORDER
     Dosage: 2 MILLIGRAM
     Route: 065
  28. CLOMIPRAMINE [Concomitant]
     Active Substance: CLOMIPRAMINE
     Indication: TOURETTE^S DISORDER
     Dosage: 75 MILLIGRAM
     Route: 065
  29. TETRABENAZINE. [Suspect]
     Active Substance: TETRABENAZINE
     Indication: OBSESSIVE-COMPULSIVE DISORDER
     Dosage: 25 MILLIGRAM, QD
  30. CLONIDINE. [Suspect]
     Active Substance: CLONIDINE
     Indication: OBSESSIVE-COMPULSIVE DISORDER
     Dosage: 225 MICROGRAM, QD, 75 MICROGRAM,
     Route: 065
  31. ETHYL LOFLAZEPATE [Suspect]
     Active Substance: ETHYL LOFLAZEPATE
     Indication: TOURETTE^S DISORDER
     Dosage: UNK
     Route: 065
  32. LTG [Concomitant]
     Active Substance: LAMOTRIGINE
     Indication: ANXIETY
     Dosage: UNK
  33. PIMOZIDE. [Concomitant]
     Active Substance: PIMOZIDE
     Indication: TIC
     Dosage: 6 MILLIGRAM, QD
     Route: 065
  34. VALPROIC ACID. [Concomitant]
     Active Substance: VALPROIC ACID
     Indication: TOURETTE^S DISORDER
     Dosage: 500 MILLIGRAM, BID
     Route: 065
  35. CLOMIPRAMINE [Concomitant]
     Active Substance: CLOMIPRAMINE
     Indication: OBSESSIVE-COMPULSIVE DISORDER
  36. FLUVOXAMINE [Suspect]
     Active Substance: FLUVOXAMINE
     Indication: TOURETTE^S DISORDER
     Dosage: UNK
     Route: 065
  37. ETHYL LOFLAZEPATE [Suspect]
     Active Substance: ETHYL LOFLAZEPATE
     Indication: OBSESSIVE-COMPULSIVE DISORDER
  38. PIMOZIDE. [Concomitant]
     Active Substance: PIMOZIDE
     Indication: ANXIETY
     Dosage: UNK
  39. LORAZEPAM. [Concomitant]
     Active Substance: LORAZEPAM
     Dosage: 2 MG, TID
     Route: 065
  40. DIAZEPAM. [Concomitant]
     Active Substance: DIAZEPAM
     Indication: PRODUCT USED FOR UNKNOWN INDICATION
     Dosage: 10 MILLIGRAM, QD, 5 MG, BID
     Route: 065
  41. SERTRALINE [Suspect]
     Active Substance: SERTRALINE HYDROCHLORIDE
     Indication: OBSESSIVE-COMPULSIVE DISORDER
  42. TETRABENAZINE. [Suspect]
     Active Substance: TETRABENAZINE
     Dosage: 37.5 MILLIGRAM, BID
  43. CLONIDINE. [Suspect]
     Active Substance: CLONIDINE
     Indication: TOURETTE^S DISORDER
     Dosage: 337.5 MICROGRAM, QD,112.5 MICROGRAM,TID
     Route: 065
  44. CLONIDINE. [Suspect]
     Active Substance: CLONIDINE
     Dosage: 150 MICROGRAM (.25 DAY)
  45. FLUVOXAMINE [Suspect]
     Active Substance: FLUVOXAMINE
     Indication: OBSESSIVE-COMPULSIVE DISORDER
     Dosage: 50 MILLIGRAM, QD
  46. CLONAZEPAM. [Suspect]
     Active Substance: CLONAZEPAM
     Indication: OBSESSIVE-COMPULSIVE DISORDER
     Dosage: 0.5 MILLIGRAM, TID (THREE TIMES A DAY)
     Route: 065
  47. DIAZEPAM. [Suspect]
     Active Substance: DIAZEPAM
     Indication: TOURETTE^S DISORDER
  48. CLONAZEPAM. [Concomitant]
     Active Substance: CLONAZEPAM
     Indication: ANXIETY
     Dosage: UNK
     Route: 065
  49. FLUVOXAMINE [Concomitant]
     Active Substance: FLUVOXAMINE
     Indication: TIC
     Dosage: 50 MILLIGRAM, QD
     Route: 065
  50. LAMOTRIGINE. [Suspect]
     Active Substance: LAMOTRIGINE
     Indication: TOURETTE^S DISORDER
     Dosage: 75 MILLIGRAM, QD
  51. OLANZAPINE. [Suspect]
     Active Substance: OLANZAPINE
     Indication: OBSESSIVE-COMPULSIVE DISORDER
  52. TETRABENAZINE. [Suspect]
     Active Substance: TETRABENAZINE
     Indication: TOURETTE^S DISORDER
     Dosage: 37.5 MG, UNK (37.5 PLUS 25 PLUS 37.5 MG)
  53. TIAPRIDE [Suspect]
     Active Substance: TIAPRIDE
     Indication: OBSESSIVE-COMPULSIVE DISORDER
     Dosage: 50 MILLIGRAM, TID
     Route: 065
  54. PIMOZIDE. [Suspect]
     Active Substance: PIMOZIDE
     Indication: TOURETTE^S DISORDER
     Dosage: 6 MILLIGRAM, QD

REACTIONS (5)
  - Weight increased [Unknown]
  - Parkinsonism [Unknown]
  - Catatonia [Unknown]
  - Drug ineffective [Unknown]
  - Neuroleptic malignant syndrome [Unknown]
